FAERS Safety Report 8261334-6 (Version None)
Quarter: 2012Q2

REPORT INFORMATION
  Report Type: 
  Country: None (occurrence: None)
  Receive Date: 20120402
  Receipt Date: 20120319
  Transmission Date: 20120825
  Serious: Yes (Hospitalization, Other)
  Sender: FDA-Public Use
  Company Number: 2012P1010280

PATIENT
  Age: 36 Week
  Sex: Male
  Weight: 2.4 kg

DRUGS (13)
  1. LIDOCAINE [Suspect]
     Indication: VENTRICULAR TACHYCARDIA
     Dosage: 1 MG/KG; 10 UG/KG; 40 UG/KG; 1 MG/KG;2 TIMES; 50 UG/KG; 1 MG/KG; IV
     Route: 042
  2. POTASSIUM [Concomitant]
  3. DOPAMINE HCL [Concomitant]
  4. VECURONIUM BROMIDE [Concomitant]
  5. FENTANYL CITRATE [Concomitant]
  6. MAGNESIUM [Concomitant]
  7. CALCIUM GLUCONATE [Concomitant]
  8. 5% ALBUMIN [Concomitant]
  9. AMIODARONE HCL [Suspect]
     Indication: TORSADE DE POINTES
     Dosage: 1 MG/KG; 3 MG;11 TIMES; 1 MG/KG;3 TIMES;
  10. ESMOLOL HCL [Concomitant]
  11. MILRINONE [Concomitant]
  12. ISOPROTERENOL HCL [Concomitant]
  13. PHENYTOIN [Suspect]
     Indication: VENTRICULAR TACHYCARDIA
     Dosage: 8 MG/KG; 5 MG/KG;

REACTIONS (7)
  - METABOLIC ACIDOSIS [None]
  - TOXICITY TO VARIOUS AGENTS [None]
  - SINUS BRADYCARDIA [None]
  - ATRIOVENTRICULAR BLOCK [None]
  - DRUG INTERACTION [None]
  - LONG QT SYNDROME CONGENITAL [None]
  - VENTRICULAR ARRHYTHMIA [None]
